FAERS Safety Report 7644767-8 (Version None)
Quarter: 2011Q3

REPORT INFORMATION
  Report Type: 
  Country: None (occurrence: None)
  Receive Date: 20110729
  Receipt Date: 20110720
  Transmission Date: 20111222
  Serious: Yes (Other)
  Sender: FDA-Public Use
  Company Number: US-AMGEN-USASP2011037031

PATIENT
  Sex: Female

DRUGS (1)
  1. ENBREL [Suspect]

REACTIONS (4)
  - INJURY ASSOCIATED WITH DEVICE [None]
  - INJECTION SITE PAIN [None]
  - ACCIDENTAL EXPOSURE [None]
  - INJECTION SITE HAEMORRHAGE [None]
